FAERS Safety Report 4843478-1 (Version None)
Quarter: 2005Q4

REPORT INFORMATION
  Report Type: 
  Country: None (occurrence: None)
  Receive Date: 20051101
  Receipt Date: 20041117
  Transmission Date: 20060501
  Serious: Yes (Hospitalization)
  Sender: FDA-Public Use
  Company Number: DSA_25438_2004

PATIENT
  Age: 27 Year
  Sex: Female

DRUGS (2)
  1. ATIVAN [Suspect]
     Dosage: DF ONCE PO
     Route: 048
     Dates: start: 20041017, end: 20041017
  2. CLOZAPINE [Concomitant]

REACTIONS (1)
  - OVERDOSE [None]
